FAERS Safety Report 24429721 (Version 2)
Quarter: 2024Q4

REPORT INFORMATION
  Report Type: Spontaneous
  Country: US (occurrence: US)
  Receive Date: 20241012
  Receipt Date: 20241024
  Transmission Date: 20250115
  Serious: Yes (Other)
  Sender: REGENERON
  Company Number: US-REGENERON PHARMACEUTICALS, INC.-2024-135884

PATIENT
  Sex: Female

DRUGS (7)
  1. EYLEA [Suspect]
     Active Substance: AFLIBERCEPT
     Indication: Neovascular age-related macular degeneration
     Dosage: UNK (FORMULATION: UNKNOWN)
     Route: 031
     Dates: start: 2023
  2. TIKOSYN [Concomitant]
     Active Substance: DOFETILIDE
     Indication: Atrial fibrillation
     Dosage: 125 MCG (2 CAPSULES), TWO TIMES DAILY
     Route: 048
     Dates: start: 2023
  3. DILTIAZEM [Concomitant]
     Active Substance: DILTIAZEM
     Indication: Hypertension
  4. TORSEMIDE [Concomitant]
     Active Substance: TORSEMIDE
     Indication: Left ventricular failure
     Dosage: 10 MG, TID
     Dates: start: 2018
  5. TORSEMIDE [Concomitant]
     Active Substance: TORSEMIDE
     Indication: Pulmonary hypertension
  6. SPIRONOLACTONE [Concomitant]
     Active Substance: SPIRONOLACTONE
     Indication: Hypertension
     Dosage: 12.5 MG, BID
     Dates: start: 2018
  7. LOSARTAN [Concomitant]
     Active Substance: LOSARTAN
     Indication: Hypertension
     Dosage: 25 MG, BID
     Dates: start: 2018

REACTIONS (10)
  - Hepatic fibrosis [Unknown]
  - Eye disorder [Unknown]
  - Visual impairment [Unknown]
  - Metamorphopsia [Unknown]
  - Blood creatinine decreased [Unknown]
  - Red blood cell sedimentation rate abnormal [Unknown]
  - Hepatic enzyme increased [Unknown]
  - Abdominal pain upper [Unknown]
  - Gastrointestinal disorder [Unknown]
  - Impaired driving ability [Unknown]

NARRATIVE: CASE EVENT DATE: 20230101
